FAERS Safety Report 4785822-X (Version None)
Quarter: 2005Q4

REPORT INFORMATION
  Report Type: 
  Country: None (occurrence: None)
  Receive Date: 20051003
  Receipt Date: 20050901
  Transmission Date: 20060501
  Serious: Yes (Other)
  Sender: FDA-Public Use
  Company Number: 200517766GDDC

PATIENT
  Age: 70 Year
  Sex: Female

DRUGS (8)
  1. ARAVA [Suspect]
     Indication: RHEUMATOID ARTHRITIS
     Route: 048
     Dates: start: 20040901, end: 20050801
  2. WARFARIN SODIUM [Suspect]
     Dosage: DOSE: UNK
  3. ADALIMUMAB [Suspect]
     Dosage: DOSE: UNK
  4. ATACAND [Concomitant]
     Indication: HYPERTENSION
     Route: 048
  5. LOSEC [Concomitant]
     Route: 048
  6. GOLD INJECTION [Concomitant]
     Dosage: DOSE: UNK
  7. FISH OIL [Concomitant]
     Dosage: DOSE: UNK
  8. ZANIDIP [Concomitant]
     Indication: HYPERTENSION
     Route: 048

REACTIONS (3)
  - DEEP VEIN THROMBOSIS [None]
  - DIARRHOEA [None]
  - WHITE BLOOD CELL COUNT DECREASED [None]
